FAERS Safety Report 21505003 (Version 2)
Quarter: 2022Q4

REPORT INFORMATION
  Report Type: Spontaneous
  Country: DE (occurrence: DE)
  Receive Date: 20221025
  Receipt Date: 20221228
  Transmission Date: 20230113
  Serious: Yes (Death, Other)
  Sender: FDA-Public Use
  Company Number: DE-VALIDUS PHARMACEUTICALS LLC-DE-VDP-2022-015776

PATIENT

DRUGS (71)
  1. LASIX [Suspect]
     Active Substance: FUROSEMIDE
     Indication: Oedema
     Dosage: 1 DF
     Route: 065
     Dates: end: 19950112
  2. LASIX [Suspect]
     Active Substance: FUROSEMIDE
     Indication: Polyuria
     Dosage: ADMINISTERED ON 13 JAN AND ON 15 JAN 1995
     Route: 065
     Dates: start: 19950113, end: 19950115
  3. FOLIC ACID [Suspect]
     Active Substance: FOLIC ACID
     Indication: Iron deficiency
     Dosage: 2 DF, QD
     Route: 065
     Dates: start: 19950119
  4. BISOLVON [Suspect]
     Active Substance: BROMHEXINE HYDROCHLORIDE
     Indication: Cough
     Dosage: UNK
     Route: 065
     Dates: start: 19950116, end: 19950116
  5. MIDAZOLAM [Suspect]
     Active Substance: MIDAZOLAM
     Indication: Anaesthesia
     Dosage: UNK
     Route: 065
     Dates: start: 19950113, end: 19950113
  6. BUTYLSCOPOLAMINE BROMIDE [Suspect]
     Active Substance: BUTYLSCOPOLAMINE BROMIDE
     Indication: Pain
     Dosage: UNK
     Route: 065
     Dates: start: 19950130, end: 19950130
  7. CYANOCOBALAMIN [Suspect]
     Active Substance: CYANOCOBALAMIN
     Indication: Iron deficiency
     Dosage: 2 DF, QD
     Route: 065
     Dates: start: 19950119
  8. ASPIRIN [Suspect]
     Active Substance: ASPIRIN
     Indication: Thrombosis prophylaxis
     Dosage: UNK
     Route: 065
     Dates: start: 19950116, end: 19950124
  9. CEFUROXIME SODIUM [Suspect]
     Active Substance: CEFUROXIME SODIUM
     Indication: Infection
     Dosage: 3 DF
     Route: 065
     Dates: start: 19950124
  10. TRAMADOL [Suspect]
     Active Substance: TRAMADOL
     Indication: Pain
     Dosage: UNK
     Route: 065
     Dates: start: 19950126, end: 19950126
  11. ACETYLCYSTEINE [Suspect]
     Active Substance: ACETYLCYSTEINE
     Indication: Cough
     Dosage: 3 DF
     Route: 065
     Dates: start: 19950119
  12. METOCLOPRAMIDE HYDROCHLORIDE [Suspect]
     Active Substance: METOCLOPRAMIDE HYDROCHLORIDE
     Indication: Nausea
     Dosage: 60 GTT DROPS, QD
     Route: 065
     Dates: start: 19950129
  13. POTASSIUM CARBONATE\POTASSIUM CITRATE [Suspect]
     Active Substance: POTASSIUM CARBONATE\POTASSIUM CITRATE
     Indication: Blood potassium decreased
     Dosage: UNK
     Route: 065
     Dates: start: 19950119, end: 19950120
  14. POTASSIUM CARBONATE\POTASSIUM CITRATE [Suspect]
     Active Substance: POTASSIUM CARBONATE\POTASSIUM CITRATE
     Dosage: UNK
     Route: 065
     Dates: start: 19950123, end: 19950127
  15. DOPAMINE [Suspect]
     Active Substance: DOPAMINE HYDROCHLORIDE
     Indication: Cardiovascular disorder
     Dosage: 3 ML/H
     Route: 065
     Dates: start: 19950113, end: 19950115
  16. OXAZEPAM [Suspect]
     Active Substance: OXAZEPAM
     Indication: Sleep disorder
     Dosage: UNK
     Route: 065
     Dates: start: 19950121, end: 19950121
  17. ALLOPURINOL [Suspect]
     Active Substance: ALLOPURINOL
     Indication: Hyperuricaemia
     Dosage: UNK
     Route: 065
     Dates: start: 19950126
  18. DIGITOXIN [Suspect]
     Active Substance: DIGITOXIN
     Indication: Cardiac failure
     Dosage: NOT GIVEN FROM 12 JAN TO 22 JAN 95
     Route: 065
     Dates: end: 19950124
  19. FERROUS GLYCINE SULFATE [Suspect]
     Active Substance: FERROUS GLYCINE SULFATE
     Indication: Iron deficiency
     Dosage: 2 DF, QD
     Route: 065
     Dates: start: 19950119
  20. FLUNITRAZEPAM [Suspect]
     Active Substance: FLUNITRAZEPAM
     Indication: Anaesthesia
     Dosage: UNK
     Route: 065
     Dates: start: 19950113, end: 19950113
  21. FERROUS GLYCINE SULFATE [Suspect]
     Active Substance: FERROUS GLYCINE SULFATE
     Indication: Product used for unknown indication
     Dosage: UNK
     Route: 065
  22. BACTRIM [Suspect]
     Active Substance: SULFAMETHOXAZOLE\TRIMETHOPRIM
     Indication: Infection
     Dosage: 2 DF, QD
     Route: 065
     Dates: start: 19950122, end: 19950123
  23. METOCLOPRAMIDE HYDROCHLORIDE [Suspect]
     Active Substance: METOCLOPRAMIDE HYDROCHLORIDE
     Indication: Product used for unknown indication
     Dosage: UNK
     Route: 065
  24. VALIUM [Suspect]
     Active Substance: DIAZEPAM
     Indication: Product used for unknown indication
     Dosage: UNK
     Route: 065
  25. VALIUM [Suspect]
     Active Substance: DIAZEPAM
     Indication: Pain
     Dosage: UNK
     Route: 065
  26. BROMAZEPAM [Suspect]
     Active Substance: BROMAZEPAM
     Indication: Sedation
     Dosage: 0.25 DF
     Route: 065
     Dates: start: 19950128, end: 19950128
  27. DOBUTREX [Concomitant]
     Active Substance: DOBUTAMINE HYDROCHLORIDE
     Indication: Cardiovascular disorder
     Dosage: UNK
     Route: 065
     Dates: start: 19950114, end: 19950115
  28. DIGITOXIN [Concomitant]
     Active Substance: DIGITOXIN
     Indication: Left ventricular failure
     Dosage: UNK
     Route: 065
     Dates: start: 19950113, end: 19950114
  29. CLEMASTINE [Concomitant]
     Active Substance: CLEMASTINE
     Indication: Hypersensitivity
     Dosage: UNK
     Route: 065
     Dates: start: 19950203, end: 19950203
  30. ENFLURAN [Concomitant]
     Indication: Anaesthesia
     Dosage: INHALATION VAPOUR, SOLUTION
     Route: 065
     Dates: start: 19950113, end: 19950113
  31. GELAFUNDINA [Concomitant]
     Indication: Hypovolaemia
     Dosage: UNK
     Route: 065
     Dates: start: 19950113, end: 19950113
  32. CAPTOPRIL [Concomitant]
     Active Substance: CAPTOPRIL
     Indication: Cardiac failure
     Dosage: UNK
     Route: 065
     Dates: end: 19950112
  33. CALCIUM CHLORIDE [Concomitant]
     Active Substance: CALCIUM CHLORIDE
     Indication: Fluid replacement
     Dosage: UNK
     Route: 065
     Dates: start: 19950113, end: 19950201
  34. ANTITHROMBIN III HUMAN [Concomitant]
     Active Substance: ANTITHROMBIN III HUMAN
     Indication: Coagulopathy
     Dosage: UNK
     Route: 065
     Dates: start: 19950113, end: 19950113
  35. SODIUM CHLORIDE [Concomitant]
     Active Substance: SODIUM CHLORIDE
     Indication: Hyponatraemia
     Dosage: UNK
     Route: 065
     Dates: start: 19950115, end: 19950115
  36. PIRITRAMIDE [Concomitant]
     Active Substance: PIRITRAMIDE
     Indication: Pain
     Dosage: UNK
     Route: 065
     Dates: start: 19950113, end: 19950115
  37. ALBUMIN HUMAN [Concomitant]
     Active Substance: ALBUMIN HUMAN
     Indication: Hypovolaemia
     Dosage: UNK
     Route: 065
     Dates: start: 19950113, end: 19950113
  38. DULCOLAX (BISACODYL) [Concomitant]
     Active Substance: BISACODYL
     Indication: Constipation
     Dosage: UNK
     Route: 065
     Dates: start: 19950116, end: 19950202
  39. ETHACRYNIC ACID [Concomitant]
     Active Substance: ETHACRYNIC ACID
     Indication: Oedema
     Dosage: UNK
     Route: 065
     Dates: start: 19950116
  40. CLEMASTINE [Concomitant]
     Active Substance: CLEMASTINE
     Indication: Hypersensitivity
     Dosage: UNK
     Route: 065
     Dates: start: 19950202
  41. HEPARIN [Concomitant]
     Active Substance: HEPARIN SODIUM
     Indication: Thrombosis prophylaxis
     Dosage: UNK
     Route: 065
     Dates: end: 19950109
  42. DIGOXIN [Concomitant]
     Active Substance: DIGOXIN
     Indication: Cardiac failure
     Dosage: UNK
     Route: 065
     Dates: start: 19950107
  43. SUFENTA [Concomitant]
     Active Substance: SUFENTANIL CITRATE
     Indication: Anaesthesia
     Dosage: UNK
     Route: 065
     Dates: start: 19950113, end: 19950113
  44. FENTANYL [Concomitant]
     Active Substance: FENTANYL
     Indication: Anaesthesia
     Dosage: UNK
     Route: 065
     Dates: start: 19950113, end: 19950113
  45. HEPARIN SODIUM [Concomitant]
     Active Substance: HEPARIN SODIUM
     Indication: Thrombosis prophylaxis
     Dosage: UNK
     Route: 065
     Dates: start: 19950109
  46. PREDNISOLONE SODIUM SUCCINATE [Concomitant]
     Active Substance: PREDNISOLONE SODIUM SUCCINATE
     Indication: Hypersensitivity
     Dosage: UNK
     Route: 065
     Dates: start: 19950202
  47. EUCALYPTUS [EUCALYPTUS GLOBULUS] [Concomitant]
     Indication: Prophylaxis
     Route: 065
  48. NITROLINGUAL [Concomitant]
     Active Substance: NITROGLYCERIN
     Indication: Cardiac failure
     Dosage: UNK
     Route: 065
     Dates: start: 19950113, end: 19950113
  49. LACTULOSE [Concomitant]
     Active Substance: LACTULOSE
     Indication: Constipation
     Dosage: UNK
     Route: 065
     Dates: start: 19950109, end: 19950117
  50. CALCIUM [Concomitant]
     Active Substance: CALCIUM
     Indication: Blood calcium decreased
     Dosage: UNK
     Route: 065
     Dates: start: 19950113, end: 19950113
  51. LEVOTHYROXINE SODIUM [Concomitant]
     Active Substance: LEVOTHYROXINE SODIUM
     Indication: Thyroid disorder
     Route: 065
  52. ISOSORBIDE DINITRATE [Concomitant]
     Active Substance: ISOSORBIDE DINITRATE
     Indication: Coronary artery disease
     Dosage: UNK
     Route: 065
     Dates: end: 19950112
  53. SUCRALFATE [Concomitant]
     Active Substance: SUCRALFATE
     Indication: Prophylaxis
     Dosage: UNK
     Route: 065
     Dates: end: 19950119
  54. ETHACRYNIC ACID [Concomitant]
     Active Substance: ETHACRYNIC ACID
     Indication: Polyuria
     Dosage: UNK
     Route: 065
     Dates: start: 19950113, end: 19950115
  55. DILTIAZEM [Concomitant]
     Active Substance: DILTIAZEM
     Indication: Coronary artery disease
     Dosage: UNK
     Route: 065
     Dates: start: 19950113, end: 19950113
  56. METOPROLOL [Concomitant]
     Active Substance: METOPROLOL
     Indication: Hypertension
     Dosage: UNK
     Route: 065
     Dates: end: 19950112
  57. MANNITOL [Concomitant]
     Active Substance: MANNITOL
     Indication: Polyuria
     Dosage: UNK
     Route: 065
     Dates: start: 19950113, end: 19950115
  58. CIPROFLOXACIN HYDROCHLORIDE [Concomitant]
     Active Substance: CIPROFLOXACIN HYDROCHLORIDE
     Indication: Infection
     Dosage: UNK
     Route: 065
     Dates: start: 19950203, end: 19950203
  59. SUPRARENIN [Concomitant]
     Active Substance: EPINEPHRINE
     Indication: Cardiovascular disorder
     Dosage: UNK
     Route: 065
     Dates: start: 19950113, end: 19950113
  60. NOREPINEPHRINE HYDROCHLORIDE, (+/-)- [Concomitant]
     Active Substance: NOREPINEPHRINE HYDROCHLORIDE, (+/-)-
     Indication: Cardiovascular disorder
     Dosage: UNK
     Route: 065
     Dates: start: 19950113, end: 19950113
  61. PANCURONIUM [Concomitant]
     Active Substance: PANCURONIUM
     Indication: Anaesthesia
     Dosage: UNK
     Route: 065
     Dates: start: 19950113, end: 19950113
  62. BUPRENORPHINE HYDROCHLORIDE [Concomitant]
     Active Substance: BUPRENORPHINE HYDROCHLORIDE
     Indication: Pain
     Route: 065
  63. POTASSIUM CHLORIDE [Concomitant]
     Active Substance: POTASSIUM CHLORIDE
     Indication: Hypokalaemia
     Dosage: UNK
     Route: 065
     Dates: start: 19950113, end: 19950201
  64. ADALAT [Concomitant]
     Active Substance: NIFEDIPINE
     Indication: Hypertension
     Dosage: UNK
     Route: 065
     Dates: start: 19950106, end: 19950112
  65. KCL [Concomitant]
     Active Substance: POTASSIUM CHLORIDE
     Indication: Blood potassium decreased
     Dosage: UNK
     Route: 065
     Dates: start: 19950113, end: 19950113
  66. INSULIN NOS [Concomitant]
     Active Substance: INSULIN NOS
     Indication: Blood glucose increased
     Dosage: UNK
     Route: 065
     Dates: start: 19950113, end: 19950115
  67. DEXTROSE [Concomitant]
     Active Substance: DEXTROSE
     Indication: Parenteral nutrition
     Dosage: UNK
     Route: 065
     Dates: start: 19950113, end: 19950114
  68. MAGNESIUM ASPARTATE\POTASSIUM ASPARTATE [Concomitant]
     Active Substance: MAGNESIUM ASPARTATE\POTASSIUM ASPARTATE
     Indication: Electrolyte imbalance
     Dosage: UNK
     Route: 065
     Dates: start: 19950113, end: 19950113
  69. PERFAN [Concomitant]
     Active Substance: ENOXIMONE
     Indication: Cardiac failure
     Dosage: UNK
     Route: 065
     Dates: start: 19950113, end: 19950113
  70. TRASYLOL [Concomitant]
     Active Substance: APROTININ
     Indication: Coagulopathy
     Dosage: UNK
     Route: 065
     Dates: start: 19950113, end: 19950113
  71. EUCALYPTUS OIL [Concomitant]
     Active Substance: EUCALYPTUS OIL
     Indication: Product used for unknown indication
     Route: 065

REACTIONS (12)
  - Circulatory collapse [Fatal]
  - Toxic epidermal necrolysis [Fatal]
  - Cardiac failure [Unknown]
  - Blood lactate dehydrogenase increased [Unknown]
  - Conjunctivitis [Unknown]
  - Lymphocytosis [Unknown]
  - Blood creatinine increased [Unknown]
  - Gamma-glutamyltransferase increased [Unknown]
  - Rash [Unknown]
  - Constipation [Unknown]
  - Pyrexia [Unknown]
  - Pruritus [Unknown]

NARRATIVE: CASE EVENT DATE: 19950130
